FAERS Safety Report 9772685 (Version 4)
Quarter: 2014Q1

REPORT INFORMATION
  Report Type: Report from Study
  Country: KR (occurrence: KR)
  Receive Date: 20131219
  Receipt Date: 20140317
  Transmission Date: 20141002
  Serious: Yes (Hospitalization)
  Sender: FDA-Public Use
  Company Number: KR-JNJFOC-20131208666

PATIENT
  Age: 16 Year
  Sex: Female
  Weight: 58.5 kg

DRUGS (21)
  1. REMICADE [Suspect]
     Indication: CROHN^S DISEASE
     Route: 042
     Dates: start: 20131030, end: 20131030
  2. REMICADE [Suspect]
     Indication: CROHN^S DISEASE
     Route: 042
     Dates: start: 20130911, end: 20130911
  3. REMICADE [Suspect]
     Indication: CROHN^S DISEASE
     Route: 042
     Dates: start: 20130816, end: 20130816
  4. REMICADE [Suspect]
     Indication: CROHN^S DISEASE
     Dosage: FREQUENCY 1
     Route: 042
     Dates: start: 20130802, end: 20130802
  5. SALOFALK [Concomitant]
     Indication: CROHN^S DISEASE
     Dosage: FREQUENCY 2
     Route: 048
     Dates: start: 20130516, end: 20130519
  6. SALOFALK [Concomitant]
     Indication: CROHN^S DISEASE
     Dosage: FREQUENCY 2
     Route: 048
     Dates: start: 20130524, end: 20130703
  7. SALOFALK [Concomitant]
     Indication: CROHN^S DISEASE
     Dosage: FREQUENCY 3
     Route: 048
     Dates: start: 20130520, end: 20130523
  8. AZATHIOPRINE [Concomitant]
     Indication: CROHN^S DISEASE
     Dosage: FREQUENCY 1
     Route: 048
     Dates: start: 20130724, end: 20130815
  9. AZATHIOPRINE [Concomitant]
     Indication: CROHN^S DISEASE
     Dosage: FREQUENCY 1
     Route: 048
     Dates: start: 20130708, end: 20130723
  10. AZATHIOPRINE [Concomitant]
     Indication: CROHN^S DISEASE
     Dosage: FREQUENCY 1
     Route: 048
     Dates: start: 20130816, end: 20130911
  11. PREDNISONE [Concomitant]
     Indication: CROHN^S DISEASE
     Dosage: FREQUENCY 2
     Route: 048
     Dates: start: 20130704, end: 20130706
  12. PREDNISONE [Concomitant]
     Indication: CROHN^S DISEASE
     Dosage: FREQUENCY 2
     Route: 048
     Dates: start: 20130701, end: 20130703
  13. PREDNISONE [Concomitant]
     Indication: CROHN^S DISEASE
     Dosage: FREQUENCY 2
     Route: 048
     Dates: start: 20130707, end: 20130723
  14. PREDNISONE [Concomitant]
     Indication: CROHN^S DISEASE
     Dosage: FREQUENCY 1
     Route: 048
     Dates: start: 20130724, end: 20130731
  15. PREDNISONE [Concomitant]
     Indication: CROHN^S DISEASE
     Dosage: FREQUENCY 2
     Route: 048
     Dates: start: 20130626, end: 20130630
  16. METRONIDAZOLE [Concomitant]
     Indication: HAEMATOCHEZIA
     Dosage: FREQUENCY 4
     Route: 042
     Dates: start: 20130518, end: 20130520
  17. FLASINYL [Concomitant]
     Dosage: FREQUENCY 2
     Route: 048
     Dates: start: 20130516, end: 20130517
  18. FLASINYL [Concomitant]
     Dosage: FREQUENCY 3
     Route: 048
     Dates: start: 20130624, end: 20130820
  19. UROCIT-K [Concomitant]
     Indication: HYPEROXALURIA
     Dosage: FREQUENCY 3
     Route: 048
     Dates: start: 20130719, end: 20130816
  20. ETRAVIL [Concomitant]
     Indication: HEADACHE
     Dosage: FREQUENCY 2
     Route: 048
     Dates: start: 20130716, end: 20131203
  21. NORMIX [Concomitant]
     Dosage: FREQUENCY 3
     Route: 048
     Dates: start: 20130525, end: 20130802

REACTIONS (7)
  - Lymphadenopathy [Recovered/Resolved]
  - Abdominal pain [Recovered/Resolved]
  - Headache [Not Recovered/Not Resolved]
  - Chest pain [Recovered/Resolved]
  - Haemoptysis [Recovered/Resolved]
  - Haematochezia [Recovered/Resolved]
  - Abdominal pain [Recovered/Resolved]
